FAERS Safety Report 21500638 (Version 1)
Quarter: 2022Q4

REPORT INFORMATION
  Report Type: Report from Study
  Country: US (occurrence: US)
  Receive Date: 20221025
  Receipt Date: 20221025
  Transmission Date: 20230113
  Serious: Yes (Other)
  Sender: FDA-Public Use
  Company Number: US-LEO Pharma-346221

PATIENT
  Sex: Female

DRUGS (2)
  1. DEVICE [Suspect]
     Active Substance: DEVICE
     Indication: Dermatitis atopic
  2. ADBRY [Suspect]
     Active Substance: TRALOKINUMAB-LDRM
     Indication: Dermatitis atopic
     Dosage: STARTING TREATMENT LAST WEEK AND HAD 4 INJECTIONS (600MG)

REACTIONS (3)
  - Pruritus [Unknown]
  - Insomnia [Unknown]
  - Suicidal ideation [Unknown]
